FAERS Safety Report 24358039 (Version 1)
Quarter: 2024Q3

REPORT INFORMATION
  Report Type: Spontaneous
  Country: HU (occurrence: HU)
  Receive Date: 20240924
  Receipt Date: 20240924
  Transmission Date: 20241017
  Serious: Yes (Death, Life-Threatening, Hospitalization, Other)
  Sender: PERRIGO
  Company Number: HU-TEVA-2020-HU-1840333

PATIENT
  Age: 34 Year
  Sex: Male

DRUGS (1)
  1. ACETAMINOPHEN [Suspect]
     Active Substance: ACETAMINOPHEN
     Indication: Nasopharyngitis
     Dosage: UNKNOWN, UNKNOWN
     Route: 048
     Dates: start: 201911

REACTIONS (6)
  - Lactic acidosis [Fatal]
  - Drug-induced liver injury [Fatal]
  - Liver injury [Fatal]
  - Metabolic acidosis [Fatal]
  - Loss of consciousness [Fatal]
  - Renal impairment [Fatal]

NARRATIVE: CASE EVENT DATE: 20191124
